FAERS Safety Report 6435022-2 (Version None)
Quarter: 2009Q4

REPORT INFORMATION
  Report Type: 
  Country: None (occurrence: None)
  Receive Date: 20091110
  Receipt Date: 20091028
  Transmission Date: 20100525
  Serious: Yes (Hospitalization)
  Sender: FDA-Public Use
  Company Number: PHHY2009CH46916

PATIENT
  Age: 29 Year
  Sex: Male

DRUGS (5)
  1. LEPONEX [Suspect]
     Indication: SCHIZOPHRENIA, PARANOID TYPE
     Dosage: 400 MG/DAY
     Dates: start: 20090901, end: 20091002
  2. HALDOL [Concomitant]
     Indication: SCHIZOPHRENIA
     Dosage: 2 DOSAGE FORM/DAY
     Dates: start: 20000101
  3. AKINETON [Concomitant]
     Dosage: 4 MG/DAY
  4. VALPROATE SODIUM [Concomitant]
     Dosage: 2 DOSAGE FORM/DAY
     Dates: start: 20000101
  5. LORAZEPAM [Concomitant]
     Dosage: 1 MG/DAY
     Dates: start: 20000101

REACTIONS (12)
  - ABDOMINAL PAIN UPPER [None]
  - BLADDER PAIN [None]
  - CHEST PAIN [None]
  - CONSTIPATION [None]
  - COUGH [None]
  - DYSURIA [None]
  - EAR PAIN [None]
  - MYOCARDITIS [None]
  - PAIN IN EXTREMITY [None]
  - PHARYNGEAL ERYTHEMA [None]
  - POLLAKIURIA [None]
  - UPPER RESPIRATORY TRACT INFECTION [None]
